FAERS Safety Report 7419787-9 (Version None)
Quarter: 2011Q2

REPORT INFORMATION
  Report Type: 
  Country: None (occurrence: None)
  Receive Date: 20110418
  Receipt Date: 20110411
  Transmission Date: 20111010
  Serious: Yes (Other)
  Sender: FDA-Public Use
  Company Number: DE-CELGENEUS-062-C5013-08051130

PATIENT
  Sex: Female

DRUGS (7)
  1. VINORELBINE [Concomitant]
     Route: 065
     Dates: start: 20080301, end: 20080601
  2. DEXAMETHASONE [Suspect]
     Indication: MULTIPLE MYELOMA
     Route: 048
     Dates: start: 20040401
  3. LENALIDOMIDE [Suspect]
     Indication: MULTIPLE MYELOMA
     Dosage: 25 MILLIGRAM
     Route: 048
     Dates: start: 20040401
  4. CISPLATIN [Concomitant]
     Route: 065
     Dates: start: 20080301, end: 20080601
  5. TAXOL [Concomitant]
     Route: 065
     Dates: start: 20081001, end: 20090501
  6. BEVACIZUMAB [Concomitant]
     Route: 065
     Dates: start: 20080301, end: 20080601
  7. ERLOTINIB [Concomitant]
     Route: 065
     Dates: start: 20090701, end: 20091001

REACTIONS (1)
  - BREAST CANCER IN SITU [None]
